FAERS Safety Report 8436390-2 (Version None)
Quarter: 2012Q2

REPORT INFORMATION
  Report Type: 
  Country: None (occurrence: None)
  Receive Date: 20120614
  Receipt Date: 20110406
  Transmission Date: 20120825
  Serious: No
  Sender: FDA-Public Use
  Company Number: US-NOVEN-11US002214

PATIENT
  Age: 13 Year
  Sex: Male
  Weight: 40.363 kg

DRUGS (6)
  1. LITHIUM CARBONATE [Suspect]
     Indication: AFFECTIVE DISORDER
     Route: 048
  2. CLONIDINE [Concomitant]
     Indication: ATTENTION DEFICIT/HYPERACTIVITY DISORDER
  3. ALLERGY MEDICATION [Concomitant]
     Indication: HYPERSENSITIVITY
     Route: 048
  4. RITALIN [Concomitant]
     Indication: ATTENTION DEFICIT/HYPERACTIVITY DISORDER
     Dosage: UNK
     Route: 048
  5. CLONIDINE [Concomitant]
     Indication: AFFECTIVE DISORDER
     Route: 048
  6. DAYTRANA [Suspect]
     Indication: ATTENTION DEFICIT/HYPERACTIVITY DISORDER
     Dosage: 20 MG, QD
     Route: 062
     Dates: start: 20070101

REACTIONS (5)
  - INCORRECT DRUG ADMINISTRATION DURATION [None]
  - PRODUCT QUALITY ISSUE [None]
  - DRUG ADMINISTRATION ERROR [None]
  - DISTURBANCE IN ATTENTION [None]
  - RESTLESSNESS [None]
